FAERS Safety Report 21589539 (Version 6)
Quarter: 2024Q4

REPORT INFORMATION
  Report Type: Report from Study
  Country: CA (occurrence: CA)
  Receive Date: 20221114
  Receipt Date: 20241029
  Transmission Date: 20250115
  Serious: Yes (Disabling, Other)
  Sender: BIOCON
  Company Number: CA-MYLANLABS-2022M1030289

PATIENT

DRUGS (7)
  1. HULIO [Suspect]
     Active Substance: ADALIMUMAB-FKJP
     Indication: Rheumatoid arthritis
     Dosage: 40 MILLIGRAM, QW (40MG Q WEEKLY X 4 WEEKS)
     Route: 065
  2. HULIO [Suspect]
     Active Substance: ADALIMUMAB-FKJP
     Dosage: 40 MILLIGRAM, BIWEEKLY (40 MILLIGRAM, EVERY 14 DAYS)
     Route: 058
     Dates: start: 20220414
  3. HULIO [Suspect]
     Active Substance: ADALIMUMAB-FKJP
     Dosage: 4 MILLIGRAM, QW (WEEKLY)
     Route: 058
     Dates: start: 20220414
  4. HULIO [Suspect]
     Active Substance: ADALIMUMAB-FKJP
     Dosage: 40 MILLIGRAM, PEN, QW
     Route: 058
     Dates: start: 20230120
  5. HULIO [Suspect]
     Active Substance: ADALIMUMAB-FKJP
     Dosage: 40 MILLIGRAM
     Route: 058
     Dates: start: 20220414
  6. HULIO [Suspect]
     Active Substance: ADALIMUMAB-FKJP
     Dosage: 40 MG EVERY 10 DAYS
     Route: 058
     Dates: start: 20220414
  7. METHOTREXATE [Concomitant]
     Active Substance: METHOTREXATE
     Indication: Product used for unknown indication
     Dosage: 5 DOSAGE FORM, QW, TAKE 5 TABS (10MG TOTAL) ONCE WEEKLY
     Route: 048

REACTIONS (7)
  - Rheumatoid arthritis [Unknown]
  - Impaired work ability [Unknown]
  - Hordeolum [Unknown]
  - Immune system disorder [Unknown]
  - Eczema [Unknown]
  - Off label use [Unknown]
  - Wrong technique in product usage process [Unknown]
